FAERS Safety Report 7913714-3 (Version None)
Quarter: 2011Q4

REPORT INFORMATION
  Report Type: 
  Country: None (occurrence: None)
  Receive Date: 20111115
  Receipt Date: 20110506
  Transmission Date: 20120403
  Serious: Yes (Death)
  Sender: FDA-Public Use
  Company Number: US-BAYER-201034521NA

PATIENT
  Age: 50 Year
  Sex: Male

DRUGS (2)
  1. NEXAVAR [Suspect]
     Route: 048
     Dates: start: 20100901
  2. NEXAVAR [Suspect]
     Indication: HEPATIC NEOPLASM MALIGNANT
     Dosage: 400 MG, BID
     Route: 048
     Dates: start: 20100903, end: 20100915

REACTIONS (4)
  - DEATH [None]
  - DEPRESSED MOOD [None]
  - PRURITUS [None]
  - ORAL PAIN [None]
